FAERS Safety Report 24226075 (Version 1)
Quarter: 2024Q3

REPORT INFORMATION
  Report Type: Spontaneous
  Country: US (occurrence: US)
  Receive Date: 20240820
  Receipt Date: 20240820
  Transmission Date: 20241016
  Serious: No
  Sender: ACCORD
  Company Number: US-Accord-402807

PATIENT
  Sex: Female

DRUGS (1)
  1. ANASTROZOLE [Suspect]
     Active Substance: ANASTROZOLE
     Indication: Breast cancer
     Dosage: ONCE A DAY, SINCE 2002
     Route: 048

REACTIONS (1)
  - Alopecia [Recovering/Resolving]
